FAERS Safety Report 5397146-0 (Version None)
Quarter: 2007Q3

REPORT INFORMATION
  Report Type: 
  Country: None (occurrence: None)
  Receive Date: 20070725
  Receipt Date: 20070713
  Transmission Date: 20080115
  Serious: Yes (Hospitalization, Other)
  Sender: FDA-Public Use
  Company Number: US-PFIZER INC-2006118351

PATIENT
  Sex: Male
  Weight: 82.6 kg

DRUGS (29)
  1. XALATAN [Suspect]
     Indication: GLAUCOMA
     Route: 047
  2. LIPITOR [Suspect]
     Indication: HYPERCHOLESTEROLAEMIA
     Dates: start: 20060101
  3. DEXTROAMPHETAMINE SULFATE [Suspect]
  4. ALLEGRA [Suspect]
     Dosage: DAILY DOSE:180MG
  5. ASTELIN [Suspect]
     Indication: RHINITIS
     Dates: start: 19940101, end: 20070628
  6. PROPOFOL [Suspect]
  7. SYNTHROID [Concomitant]
     Indication: ADENOMA BENIGN
     Dates: start: 19970101, end: 20061013
  8. VITAMIN D3 [Concomitant]
     Dosage: DAILY DOSE:1000I.U.
     Route: 048
  9. ASPIRIN [Concomitant]
     Dosage: DAILY DOSE:325MG
  10. THYROXIN [Concomitant]
  11. HEPATITIS B VACCINE [Concomitant]
  12. LEVOTHYROXINE SODIUM [Concomitant]
     Dates: end: 20061013
  13. DEXTROAMPHETAMINE SULFATE [Concomitant]
  14. METHYLPHENIDATE HCL [Concomitant]
  15. ASCORBIC ACID [Concomitant]
  16. VITAMIN B [Concomitant]
  17. VITAMIN CAP [Concomitant]
  18. CALCIUM CHLORIDE [Concomitant]
  19. COFFEE [Concomitant]
  20. ATROVENT [Concomitant]
  21. NASALCROM [Concomitant]
  22. MONTELUKAST SODIUM [Concomitant]
  23. SUDAFED 12 HOUR [Concomitant]
  24. OXYMETAZOLINE HYDROCHLORIDE [Concomitant]
  25. LEVOPROPYLHEXEDRINE [Concomitant]
  26. ZOCOR [Concomitant]
  27. ZETIA [Concomitant]
  28. MEVACOR [Concomitant]
  29. ALL OTHER THERAPEUTIC PRODUCTS [Concomitant]

REACTIONS (32)
  - ARRHYTHMIA [None]
  - ARTERIOSCLEROSIS [None]
  - ATELECTASIS [None]
  - AUTONOMIC NERVOUS SYSTEM IMBALANCE [None]
  - BONE LESION [None]
  - CHRONIC FATIGUE SYNDROME [None]
  - COGNITIVE DISORDER [None]
  - COLONIC POLYP [None]
  - DENTAL CARIES [None]
  - DIVERTICULUM [None]
  - DRUG DEPENDENCE [None]
  - DYSPEPSIA [None]
  - EXOSTOSIS [None]
  - HAEMORRHOIDS [None]
  - HUNGRY BONE SYNDROME [None]
  - HYPERSOMNIA [None]
  - HYPOTHERMIA [None]
  - LEFT ATRIAL DILATATION [None]
  - MYALGIA [None]
  - NASAL CONGESTION [None]
  - NASAL CYST [None]
  - NASAL TURBINATE HYPERTROPHY [None]
  - OSTEOPENIA [None]
  - PARATHYROID TUMOUR BENIGN [None]
  - RENAL DISORDER [None]
  - RHINORRHOEA [None]
  - SLEEP APNOEA SYNDROME [None]
  - SLEEP DISORDER [None]
  - SPINAL OSTEOARTHRITIS [None]
  - THYROID NEOPLASM [None]
  - VASOMOTOR RHINITIS [None]
  - WEIGHT INCREASED [None]
